FAERS Safety Report 6228966-8 (Version None)
Quarter: 2009Q2

REPORT INFORMATION
  Report Type: 
  Country: None (occurrence: None)
  Receive Date: 20090615
  Receipt Date: 20090605
  Transmission Date: 20091009
  Serious: Yes (Hospitalization)
  Sender: FDA-Public Use
  Company Number: NL-ROCHE-636051

PATIENT
  Weight: 84 kg

DRUGS (11)
  1. CAPECITABINE [Suspect]
     Dosage: LAST DOSE PRIOR TO SAE: 27 NOVEMBER 2008
     Route: 065
     Dates: start: 20081106, end: 20090531
  2. CISPLATIN [Suspect]
     Dosage: LAST DOSE PRIOR TO SAE: 27 NOVEMBER 2008
     Route: 065
     Dates: start: 20081106, end: 20090531
  3. EPILEM [Suspect]
     Dosage: LAST DOSE PRIOR TO SAE: 27 NOVEMBER 2008
     Route: 065
     Dates: start: 20081106, end: 20090531
  4. GLICLAZIDE [Concomitant]
     Dosage: REPORTED 1 X DD 80 MG
     Route: 048
  5. METFORMIN HYDROCHLORIDE [Concomitant]
     Dosage: REPORTED 1 X DD 500 MG
     Route: 048
  6. SIMVASTATIN [Concomitant]
     Dosage: REPORTED 1 X DD 40 MG
     Route: 048
  7. ACETYLCYSTEINE [Concomitant]
     Dosage: REPORTED 1 X DD 20 MG
     Route: 048
  8. OMEPRAZOL [Concomitant]
     Dosage: REPORTED 1 X DD 40 MG
     Route: 048
  9. SELOKEEN [Concomitant]
  10. INSULIN [Concomitant]
  11. COLCHICINE [Concomitant]

REACTIONS (5)
  - DIARRHOEA [None]
  - HYPERGLYCAEMIA [None]
  - NAUSEA [None]
  - RENAL FAILURE [None]
  - VOMITING [None]
